FAERS Safety Report 12491749 (Version 1)
Quarter: 2016Q2

REPORT INFORMATION
  Report Type: Report from Study
  Country: IN (occurrence: IN)
  Receive Date: 20160623
  Receipt Date: 20160623
  Transmission Date: 20160815
  Serious: Yes (Death, Hospitalization)
  Sender: FDA-Public Use
  Company Number: PHHY2016IN086059

PATIENT
  Age: 49 Year
  Sex: Female

DRUGS (1)
  1. TASIGNA [Suspect]
     Active Substance: NILOTINIB
     Indication: CHRONIC MYELOID LEUKAEMIA
     Dosage: 400 MG, BID
     Route: 048
     Dates: start: 201404

REACTIONS (2)
  - Dyspnoea [Fatal]
  - Platelet count decreased [Fatal]

NARRATIVE: CASE EVENT DATE: 20160618
